FAERS Safety Report 4784534-6 (Version None)
Quarter: 2005Q3

REPORT INFORMATION
  Report Type: 
  Country: None (occurrence: None)
  Receive Date: 20050930
  Receipt Date: 20050922
  Transmission Date: 20060218
  Serious: Yes (Other)
  Sender: FDA-Public Use
  Company Number: JP-JPN-A20052271

PATIENT
  Age: 78 Year
  Sex: Female

DRUGS (3)
  1. PAXIL [Suspect]
     Route: 048
     Dates: start: 20050801
  2. BENET [Concomitant]
     Indication: OSTEOPOROSIS
     Route: 048
  3. DOGMATYL [Concomitant]
     Indication: DEPRESSION
     Route: 065

REACTIONS (1)
  - PARKINSONISM [None]
